FAERS Safety Report 21989411 (Version 1)
Quarter: 2023Q1

REPORT INFORMATION
  Report Type: Spontaneous
  Country: US (occurrence: None)
  Receive Date: 20230210
  Receipt Date: 20230210
  Transmission Date: 20230418
  Serious: No
  Sender: FDA-Public Use
  Company Number: None

PATIENT
  Age: 80 Year
  Sex: Female

DRUGS (11)
  1. JANUVIA [Suspect]
     Active Substance: SITAGLIPTIN PHOSPHATE
     Indication: Diabetes mellitus
     Dosage: FREQUENCY : DAILY;?
     Route: 048
  2. ALLOPURINOL [Concomitant]
     Active Substance: ALLOPURINOL
  3. GLIPIZIDE XL [Concomitant]
     Active Substance: GLIPIZIDE
  4. LEVOTHYROXINE [Concomitant]
     Active Substance: LEVOTHYROXINE
  5. LOSARTAN [Concomitant]
     Active Substance: LOSARTAN
  6. ALLEGRA [Concomitant]
  7. UNSPECIFIED INGREDIENT [Concomitant]
     Active Substance: UNSPECIFIED INGREDIENT
  8. Equate Complete Multivitamin-Women 50+ [Concomitant]
  9. ATORVASTATIN [Concomitant]
     Active Substance: ATORVASTATIN
  10. MONTELUKAST [Concomitant]
     Active Substance: MONTELUKAST SODIUM
  11. ASPIRIN [Concomitant]
     Active Substance: ASPIRIN

REACTIONS (11)
  - Heart rate decreased [None]
  - Dizziness [None]
  - Ill-defined disorder [None]
  - Fatigue [None]
  - Sensory disturbance [None]
  - Chest discomfort [None]
  - Night sweats [None]
  - Dysgraphia [None]
  - Muscle spasms [None]
  - Muscle contracture [None]
  - Memory impairment [None]
